FAERS Safety Report 13532362 (Version 1)
Quarter: 2017Q2

REPORT INFORMATION
  Report Type: Report from Study
  Country: US (occurrence: US)
  Receive Date: 20170510
  Receipt Date: 20170510
  Transmission Date: 20170830
  Serious: Yes (Life-Threatening, Hospitalization)
  Sender: FDA-Public Use
  Company Number: PHHY2017US066584

PATIENT
  Age: 14 Year
  Sex: Female
  Weight: 41.8 kg

DRUGS (4)
  1. BLINDED TAZAROTENE [Suspect]
     Active Substance: TAZAROTENE
     Indication: ACNE
     Dosage: CODE NOT BROKEN
     Route: 061
     Dates: start: 20170131
  2. IBUPROFEN. [Suspect]
     Active Substance: IBUPROFEN
     Indication: PRODUCT USED FOR UNKNOWN INDICATION
     Dosage: 34 PILLS
     Route: 065
  3. BLINDED TAZAROTENE [Suspect]
     Active Substance: TAZAROTENE
     Indication: ACNE
     Dosage: CODE NOT BROKEN
     Route: 061
     Dates: start: 20170131
  4. BLINDED NO TREATMENT RECEIVED [Suspect]
     Active Substance: INVESTIGATIONAL PRODUCT
     Indication: ACNE
     Dosage: CODE NOT BROKEN
     Route: 061
     Dates: start: 20170131

REACTIONS (6)
  - Laceration [None]
  - Overdose [Unknown]
  - Depression [None]
  - Suicide attempt [Recovering/Resolving]
  - Intentional self-injury [None]
  - Intentional overdose [None]

NARRATIVE: CASE EVENT DATE: 20170420
